FAERS Safety Report 17269376 (Version 1)
Quarter: 2020Q1

REPORT INFORMATION
  Report Type: Spontaneous
  Country: US (occurrence: US)
  Receive Date: 20200114
  Receipt Date: 20200114
  Transmission Date: 20200409
  Serious: Yes (Death)
  Sender: FDA-Public Use
  Company Number: US-BAYER-2020-003262

PATIENT
  Age: 61 Year
  Sex: Male

DRUGS (10)
  1. ATENOLOL. [Suspect]
     Active Substance: ATENOLOL
  2. HYDROCHLOROTHIAZIDE. [Suspect]
     Active Substance: HYDROCHLOROTHIAZIDE
  3. ALCOHOL. [Suspect]
     Active Substance: ALCOHOL
  4. PARACETAMOL [Suspect]
     Active Substance: ACETAMINOPHEN
     Route: 048
  5. APIXABAN [Suspect]
     Active Substance: APIXABAN
  6. ACETYLSALICYLIC ACID [Suspect]
     Active Substance: ASPIRIN
     Route: 048
  7. COLCHICINE. [Suspect]
     Active Substance: COLCHICINE
  8. AMLODIPINE [Suspect]
     Active Substance: AMLODIPINE BESYLATE
  9. ALOPURINOL [Suspect]
     Active Substance: ALLOPURINOL
  10. SERTRALINE [Suspect]
     Active Substance: SERTRALINE HYDROCHLORIDE

REACTIONS (2)
  - Intentional overdose [Fatal]
  - Toxicity to various agents [Fatal]
